FAERS Safety Report 7046806 (Version 3)
Quarter: 2020Q3

REPORT INFORMATION
  Report Type: Spontaneous
  Country: SE (occurrence: SE)
  Receive Date: 20090710
  Receipt Date: 20090806
  Transmission Date: 20201105
  Serious: Yes (Hospitalization)
  Sender: FDA-Public Use
  Company Number: SE-ROCHE-641445

PATIENT
  Age: 76 Year
  Sex: Female

DRUGS (3)
  1. IBANDRONIC ACID. [Suspect]
     Active Substance: IBANDRONIC ACID
     Dosage: DRUG NAME REPORTED AS BONDRONAT FILM COATED TABLET.
     Route: 048
     Dates: start: 20090202, end: 20090605
  2. LETROZOLE. [Concomitant]
     Active Substance: LETROZOLE
  3. ALVEDON [Concomitant]

REACTIONS (1)
  - Blood creatinine increased [Not Recovered/Not Resolved]

NARRATIVE: CASE EVENT DATE: 20090604
